FAERS Safety Report 4305792-8 (Version None)
Quarter: 2004Q1

REPORT INFORMATION
  Report Type: 
  Country: None (occurrence: None)
  Receive Date: 20040226
  Receipt Date: 20040226
  Transmission Date: 20041129
  Serious: Yes (Other)
  Sender: FDA-Public Use
  Company Number: None

PATIENT
  Age: 10 Year
  Sex: Male
  Weight: 61.6892 kg

DRUGS (1)
  1. METHYLPHENIDATE 5 MG MFR-SANDOZ PHARM (GENEVA) [Suspect]
     Indication: ATTENTION DEFICIT/HYPERACTIVITY DISORDER
     Dosage: 5 MG PO BID
     Route: 048
     Dates: start: 20031006, end: 20031106

REACTIONS (3)
  - DYSPEPSIA [None]
  - IRRITABILITY [None]
  - NAUSEA [None]
